FAERS Safety Report 7777585-0 (Version None)
Quarter: 2011Q3

REPORT INFORMATION
  Report Type: 
  Country: None (occurrence: None)
  Receive Date: 20110926
  Receipt Date: 20110916
  Transmission Date: 20111222
  Serious: Yes (Other)
  Sender: FDA-Public Use
  Company Number: US-BAYER-2011-026340

PATIENT
  Age: 75 Year
  Sex: Male

DRUGS (2)
  1. SORAFENIB (RAF KINASE INHIBITOR) [Suspect]
     Indication: RENAL CELL CARCINOMA
     Dosage: 600 MG DAILY
     Route: 048
     Dates: start: 20070906
  2. SORAFENIB (RAF KINASE INHIBITOR) [Suspect]
     Dosage: 600 MG DAILY
     Route: 048

REACTIONS (2)
  - DIARRHOEA [None]
  - JOINT EFFUSION [None]
